FAERS Safety Report 4736842-2 (Version None)
Quarter: 2005Q3

REPORT INFORMATION
  Report Type: 
  Country: None (occurrence: None)
  Receive Date: 20050808
  Receipt Date: 20050726
  Transmission Date: 20060218
  Serious: Yes (Other)
  Sender: FDA-Public Use
  Company Number: 2005AP04223

PATIENT
  Sex: Female

DRUGS (3)
  1. SEROQUEL [Suspect]
     Route: 048
  2. XANAX [Suspect]
     Route: 048
  3. AURORIX [Suspect]
     Route: 048

REACTIONS (2)
  - CONVULSION [None]
  - DRUG WITHDRAWAL CONVULSIONS [None]
